FAERS Safety Report 6774161-3 (Version None)
Quarter: 2010Q2

REPORT INFORMATION
  Report Type: 
  Country: None (occurrence: None)
  Receive Date: 20100617
  Receipt Date: 20100608
  Transmission Date: 20101027
  Serious: Yes (Hospitalization)
  Sender: FDA-Public Use
  Company Number: JP-JNJFOC-20100603333

PATIENT
  Sex: Female
  Weight: 38 kg

DRUGS (15)
  1. ITRIZOLE [Suspect]
     Indication: DRUG USE FOR UNKNOWN INDICATION
     Route: 041
  2. ITRIZOLE [Suspect]
     Route: 041
  3. ITRIZOLE [Suspect]
     Route: 048
  4. CRAVIT [Concomitant]
     Indication: ATYPICAL MYCOBACTERIAL INFECTION
     Route: 048
  5. KLARICID [Concomitant]
     Indication: ATYPICAL MYCOBACTERIAL INFECTION
     Route: 048
  6. ESANBUTOL [Concomitant]
     Indication: ATYPICAL MYCOBACTERIAL INFECTION
     Route: 048
  7. ZOLOFT [Concomitant]
     Indication: DEPRESSION
     Route: 048
  8. ETIZOLAM [Concomitant]
     Indication: DEPRESSION
     Route: 048
  9. HYPEN [Concomitant]
     Indication: PYREXIA
     Route: 048
  10. MUCODYNE [Concomitant]
     Indication: BRONCHITIS CHRONIC
     Route: 048
  11. OMEPRAL [Concomitant]
     Indication: REFLUX OESOPHAGITIS
     Route: 048
  12. HOKUNALIN [Concomitant]
     Indication: BRONCHITIS CHRONIC
     Route: 003
  13. MEDICON [Concomitant]
     Indication: ATYPICAL MYCOBACTERIAL INFECTION
     Route: 048
  14. MEDICON [Concomitant]
     Indication: BRONCHITIS CHRONIC
     Route: 048
  15. COTRIM [Concomitant]
     Indication: ATYPICAL MYCOBACTERIAL INFECTION
     Route: 048

REACTIONS (4)
  - ASPERGILLOSIS [None]
  - ATYPICAL MYCOBACTERIAL INFECTION [None]
  - COUGH [None]
  - RESPIRATORY FAILURE [None]
